FAERS Safety Report 9444039 (Version 2)
Quarter: 2014Q3

REPORT INFORMATION
  Report Type: Spontaneous
  Country: US (occurrence: US)
  Receive Date: 20130807
  Receipt Date: 20140721
  Transmission Date: 20150326
  Serious: Yes (Other)
  Sender: FDA-Public Use
  Company Number: US-AMGEN-USASP2013054959

PATIENT

DRUGS (12)
  1. ENBREL [Suspect]
     Active Substance: ETANERCEPT
     Indication: EXPOSURE DURING PREGNANCY
     Dosage: 50 MG, QWK
     Route: 058
     Dates: start: 20120820
  2. MMR [Concomitant]
     Dosage: UNK
     Dates: start: 20140611
  3. ROTAVIRUS VACCINE [Concomitant]
     Dosage: UNK
     Dates: start: 20130402
  4. TYLENOL [Concomitant]
     Active Substance: ACETAMINOPHEN
     Indication: PYREXIA
     Dosage: 2 ML, QD
     Route: 064
     Dates: start: 20130402, end: 20130605
  5. HEPATITIS B [Concomitant]
     Active Substance: HUMAN HEPATITIS B VIRUS IMMUNE GLOBULIN
     Dosage: UNK
     Dates: start: 20130201
  6. VARICELLA VACCINE [Concomitant]
     Dosage: UNK
     Dates: start: 20140205
  7. PRENATAL VITAMINS                  /02014401/ [Concomitant]
     Active Substance: VITAMINS
     Indication: PREGNANCY
     Dosage: UNK UNK, QD
     Route: 064
     Dates: start: 201205, end: 20130220
  8. POLIO VACCINE [Concomitant]
     Active Substance: POLIOMYELITIS VACCINE
     Dosage: UNK
     Dates: start: 20130402
  9. HEPATITIS A [Concomitant]
     Dosage: UNK
     Dates: start: 20140205
  10. DTAP [Concomitant]
     Active Substance: DIPHTHERIA AND TETANUS TOXOIDS AND ACELLULAR PERTUSSIS VACCINE ADSORBED
     Dosage: UNK
     Dates: start: 20130402
  11. PNEUMOCOCCAL CONJUGATE VACCINE [Concomitant]
     Active Substance: PNEUMOCOCCAL VACCINE POLYVALENT
     Dosage: UNK
     Dates: start: 20130402
  12. HIB                                /06438901/ [Concomitant]
     Dosage: UNK
     Dates: start: 20130402

REACTIONS (2)
  - Feeding disorder neonatal [Unknown]
  - Gastrooesophageal reflux disease [Unknown]
